FAERS Safety Report 8602787-0 (Version None)
Quarter: 2012Q3

REPORT INFORMATION
  Report Type: 
  Country: None (occurrence: None)
  Receive Date: 20120817
  Receipt Date: 20120809
  Transmission Date: 20120928
  Serious: Yes (Other)
  Sender: FDA-Public Use
  Company Number: JP-JNJFOC-20120209075

PATIENT
  Sex: Female
  Weight: 48 kg

DRUGS (22)
  1. REMICADE [Suspect]
     Route: 042
     Dates: start: 20090908
  2. ZYRTEC [Concomitant]
     Indication: PROPHYLAXIS
     Route: 048
  3. REMICADE [Suspect]
     Indication: BEHCET'S SYNDROME
     Route: 042
     Dates: start: 20091027
  4. REMICADE [Suspect]
     Route: 042
     Dates: start: 20101013
  5. REMICADE [Suspect]
     Route: 042
     Dates: start: 20110426
  6. REMICADE [Suspect]
     Route: 042
     Dates: start: 20100823
  7. REMICADE [Suspect]
     Route: 042
     Dates: start: 20091222
  8. RINDERON-A [Concomitant]
     Dosage: FOUR TIMES
     Route: 031
     Dates: start: 20100915, end: 20110728
  9. ARMODAFINIL [Concomitant]
     Indication: PROPHYLAXIS
     Route: 048
     Dates: start: 20090728
  10. REMICADE [Suspect]
     Route: 042
     Dates: start: 20100209
  11. REMICADE [Suspect]
     Route: 042
     Dates: start: 20100330
  12. REMICADE [Suspect]
     Route: 042
     Dates: start: 20100707
  13. REMICADE [Suspect]
     Route: 042
     Dates: start: 20110118
  14. REMICADE [Suspect]
     Route: 042
     Dates: start: 20110308
  15. REMICADE [Suspect]
     Route: 042
     Dates: start: 20090811
  16. REMICADE [Suspect]
     Route: 042
     Dates: start: 20110615
  17. REMICADE [Suspect]
     Route: 042
     Dates: start: 20101201
  18. RINDERON-A [Concomitant]
     Indication: BEHCET'S SYNDROME
     Dosage: 4 TIMES A DAY IN BOTH EYES
     Route: 031
     Dates: start: 20090128, end: 20100124
  19. REMICADE [Suspect]
     Route: 042
     Dates: start: 20100519
  20. REMICADE [Suspect]
     Route: 042
     Dates: start: 20090728
  21. RINDERON-A [Concomitant]
     Dosage: TWICE TO FOUR TIMES A DAY
     Route: 031
     Dates: start: 20100125, end: 20100706
  22. FLUOROMETHOLONE [Concomitant]
     Indication: BEHCET'S SYNDROME
     Dosage: FOUR TIMES
     Route: 031
     Dates: start: 20100707

REACTIONS (2)
  - INTERSTITIAL LUNG DISEASE [None]
  - PLEURAL EFFUSION [None]
